FAERS Safety Report 5030724-7 (Version None)
Quarter: 2006Q2

REPORT INFORMATION
  Report Type: 
  Country: None (occurrence: None)
  Receive Date: 20060615
  Receipt Date: 20060607
  Transmission Date: 20061013
  Serious: Yes (Other)
  Sender: FDA-Public Use
  Company Number: 226147

PATIENT

DRUGS (1)
  1. XOLAIR [Suspect]

REACTIONS (1)
  - BRAIN NEOPLASM [None]
